FAERS Safety Report 24296593 (Version 1)
Quarter: 2024Q3

REPORT INFORMATION
  Report Type: Spontaneous
  Country: SE (occurrence: None)
  Receive Date: 20240909
  Receipt Date: 20240909
  Transmission Date: 20241016
  Serious: Yes (Hospitalization)
  Sender: ASTRAZENECA
  Company Number: 2024A203782

PATIENT
  Age: 70 Year
  Sex: Female
  Weight: 60 kg

DRUGS (11)
  1. ROSUVASTATIN [Suspect]
     Active Substance: ROSUVASTATIN\ROSUVASTATIN CALCIUM
     Indication: Blood cholesterol increased
     Dosage: 20 MILLIGRAM, 1/DAY
     Route: 048
     Dates: start: 20210724, end: 20240820
  2. FELODIPINE [Concomitant]
     Active Substance: FELODIPINE
     Dosage: 5 MILLIGRAM, 1/DAY
     Route: 048
     Dates: start: 2010
  3. BUPROPION HYDROCHLORIDE [Concomitant]
     Active Substance: BUPROPION HYDROCHLORIDE
     Dosage: 1 DOSAGE FORM, 1/DAY
     Route: 048
     Dates: start: 2018
  4. CANDESARTAN [Concomitant]
     Active Substance: CANDESARTAN
     Dosage: 8 MILLIGRAM, 1/DAY
     Route: 048
     Dates: start: 2010
  5. CALCIUM CARBONATE\CHOLECALCIFEROL [Concomitant]
     Active Substance: CALCIUM CARBONATE\CHOLECALCIFEROL
     Dosage: 1 DOSAGE FORM, 2/DAY, 500 MG/400 IE
     Route: 048
     Dates: start: 2010
  6. OMNITROPE [Concomitant]
     Active Substance: SOMATROPIN
     Dosage: 0.3 MILLILITRE0.3ML UNKNOWN
     Route: 058
     Dates: start: 2002
  7. CUVITRU [Concomitant]
     Active Substance: HUMAN IMMUNOGLOBULIN G
     Dosage: 30 MILLILITRE, 1/WEEK
     Route: 058
     Dates: start: 2003
  8. LEVOTHYROXINE SODIUM [Concomitant]
     Active Substance: LEVOTHYROXINE SODIUM
     Dosage: 1 DOSAGE FORM, 1/DAY
     Route: 048
     Dates: start: 2002
  9. ESOMEPRAZOLE [Concomitant]
     Active Substance: ESOMEPRAZOLE
     Dosage: 20 MILLIGRAM, 1/DAY
     Route: 048
     Dates: start: 2014
  10. PRASTERON APL [Concomitant]
     Dosage: 25 MILLIGRAM, 1/DAY
     Route: 048
     Dates: start: 2002
  11. HYDROKORTISON [Concomitant]
     Dosage: 2 DOSAGE FORM, 1/DAY
     Route: 048
     Dates: start: 2002

REACTIONS (1)
  - Tendon rupture [Recovering/Resolving]

NARRATIVE: CASE EVENT DATE: 20240101
